FAERS Safety Report 13274246 (Version 1)
Quarter: 2017Q1

REPORT INFORMATION
  Report Type: Spontaneous
  Country: DE (occurrence: DE)
  Receive Date: 20170227
  Receipt Date: 20170227
  Transmission Date: 20170428
  Serious: Yes (Death, Hospitalization)
  Sender: FDA-Public Use
  Company Number: DE-INGENUS PHARMACEUTICALS NJ, LLC-ING201702-000082

PATIENT
  Age: 73 Year
  Sex: Male

DRUGS (19)
  1. DIGITOXIN [Concomitant]
     Active Substance: DIGITOXIN
  2. SIMVASTATIN. [Concomitant]
     Active Substance: SIMVASTATIN
  3. PROBENECID AND COLCHICINE [Suspect]
     Active Substance: COLCHICINE\PROBENECID
     Indication: GOUT
  4. VALSARTAN. [Concomitant]
     Active Substance: VALSARTAN
  5. ZOPICLONE [Concomitant]
     Active Substance: ZOPICLONE
  6. PROBENECID AND COLCHICINE [Suspect]
     Active Substance: COLCHICINE\PROBENECID
  7. MOXONIDINE [Concomitant]
     Active Substance: MOXONIDINE
  8. METFORMIN [Concomitant]
     Active Substance: METFORMIN HYDROCHLORIDE
  9. HYDROCHLOROTHIAZIDE. [Concomitant]
     Active Substance: HYDROCHLOROTHIAZIDE
  10. AMLODIPINE [Concomitant]
     Active Substance: AMLODIPINE BESYLATE
  11. INSULIN [Concomitant]
     Active Substance: INSULIN NOS
  12. ETHYL HYDROGEN FUMARATE [Concomitant]
  13. SAXAGLIPTIN [Concomitant]
     Active Substance: SAXAGLIPTIN
  14. METOPROLOL. [Concomitant]
     Active Substance: METOPROLOL
  15. LERCANIDIPINE [Concomitant]
     Active Substance: LERCANIDIPINE
  16. RIVAROXABAN [Concomitant]
     Active Substance: RIVAROXABAN
  17. ALLOPURINOL. [Concomitant]
     Active Substance: ALLOPURINOL
  18. DIMETHYL FUMARATE [Concomitant]
     Active Substance: DIMETHYL FUMARATE
  19. DORZOLAMIDE/ TIMOLOL [Concomitant]

REACTIONS (13)
  - Metabolic acidosis [Unknown]
  - Headache [Unknown]
  - Blood pressure abnormal [Unknown]
  - Death [Fatal]
  - Haemodynamic instability [Unknown]
  - Renal failure [Unknown]
  - Agitation [Unknown]
  - Toxicity to various agents [Unknown]
  - Hepatic failure [Unknown]
  - Respiratory failure [Unknown]
  - Pain in extremity [Unknown]
  - Hyperhidrosis [Unknown]
  - Accidental overdose [Fatal]
